FAERS Safety Report 12388047 (Version 1)
Quarter: 2016Q2

REPORT INFORMATION
  Report Type: Spontaneous
  Country: AU (occurrence: None)
  Receive Date: 20160519
  Receipt Date: 20160519
  Transmission Date: 20160815
  Serious: Yes (Disabling)
  Sender: FDA-Public Use
  Company Number: None

PATIENT
  Age: 65 Year
  Sex: Female
  Weight: 80 kg

DRUGS (3)
  1. HUMIRA [Suspect]
     Active Substance: ADALIMUMAB
     Indication: RHEUMATOID ARTHRITIS
     Dosage: NFOR NIGHTLY, GIVEN INTO/UNDER THE SKIN
  2. VIT D/K2 [Concomitant]
  3. CLARITIN [Concomitant]
     Active Substance: LORATADINE

REACTIONS (6)
  - Hiccups [None]
  - Nausea [None]
  - Immobile [None]
  - Pain [None]
  - Dyspepsia [None]
  - Headache [None]
